FAERS Safety Report 21035498 (Version 1)
Quarter: 2022Q3

REPORT INFORMATION
  Report Type: Spontaneous
  Country: JP (occurrence: None)
  Receive Date: 20220701
  Receipt Date: 20220701
  Transmission Date: 20221027
  Serious: Yes (Life-Threatening, Other)
  Sender: FDA-Public Use
  Company Number: 2022A239770

PATIENT
  Age: 56 Year
  Sex: Female

DRUGS (1)
  1. LYNPARZA [Suspect]
     Active Substance: OLAPARIB
     Indication: Breast cancer female
     Dosage: 150.0MG UNKNOWN
     Route: 048

REACTIONS (6)
  - Interstitial lung disease [Recovered/Resolved]
  - Anaemia [Unknown]
  - Dizziness [Unknown]
  - Malaise [Unknown]
  - White blood cell count decreased [Unknown]
  - Neutrophil count decreased [Unknown]
